FAERS Safety Report 24143977 (Version 1)
Quarter: 2024Q3

REPORT INFORMATION
  Report Type: Spontaneous
  Country: US (occurrence: US)
  Receive Date: 20240727
  Receipt Date: 20240727
  Transmission Date: 20241017
  Serious: Yes (Life-Threatening, Other)
  Sender: AMGEN
  Company Number: US-AMGEN-USASP2024148201

PATIENT

DRUGS (7)
  1. PREDNISONE [Suspect]
     Active Substance: PREDNISONE
     Indication: B-cell type acute leukaemia
     Dosage: UNK, ON DAYS 1 TO 5 OF EACH 28-DAY CYCLE
     Route: 065
  2. ETOPOSIDE [Suspect]
     Active Substance: ETOPOSIDE
     Indication: B-cell type acute leukaemia
     Dosage: UNK, ON DAYS 1 TO 5 OF EACH 28-DAY CYCLE
     Route: 065
  3. VINCRISTINE [Suspect]
     Active Substance: VINCRISTINE
     Indication: B-cell type acute leukaemia
     Dosage: UNK, ON DAYS 1 TO 5 OF EACH 28-DAY CYCLE
     Route: 065
  4. CYCLOPHOSPHAMIDE [Suspect]
     Active Substance: CYCLOPHOSPHAMIDE
     Indication: B-cell type acute leukaemia
     Dosage: UNK, ON DAYS 1 TO 5 OF EACH 28-DAY CYCLE
     Route: 065
  5. DOXORUBICIN [Suspect]
     Active Substance: DOXORUBICIN
     Indication: B-cell type acute leukaemia
     Dosage: UNK, ON DAYS 1 TO 5 OF EACH 28-DAY CYCLE
     Route: 065
  6. INOTUZUMAB OZOGAMICIN [Suspect]
     Active Substance: INOTUZUMAB OZOGAMICIN
     Indication: B-cell type acute leukaemia
     Dosage: UNK
     Route: 065
  7. BLINATUMOMAB [Concomitant]
     Active Substance: BLINATUMOMAB
     Indication: B-cell type acute leukaemia
     Dosage: UNK

REACTIONS (19)
  - Alanine aminotransferase increased [Recovered/Resolved]
  - Sepsis [Unknown]
  - Hyponatraemia [Unknown]
  - Febrile neutropenia [Unknown]
  - Bronchopulmonary aspergillosis [Unknown]
  - Oropharyngeal candidiasis [Unknown]
  - Clostridium difficile colitis [Unknown]
  - Syncope [Unknown]
  - Hypotension [Unknown]
  - Abdominal pain [Unknown]
  - Colitis [Unknown]
  - Pancreatitis [Unknown]
  - Atrial fibrillation [Unknown]
  - Diarrhoea [Unknown]
  - Fatigue [Unknown]
  - Pancytopenia [Unknown]
  - Aspartate aminotransferase increased [Recovered/Resolved]
  - Blood bilirubin increased [Recovered/Resolved]
  - Therapy partial responder [Unknown]
